FAERS Safety Report 6631481-0 (Version None)
Quarter: 2010Q1

REPORT INFORMATION
  Report Type: 
  Country: None (occurrence: None)
  Receive Date: 20100312
  Receipt Date: 20100304
  Transmission Date: 20100710
  Serious: Yes (Hospitalization, Other)
  Sender: FDA-Public Use
  Company Number: GB-BRISTOL-MYERS SQUIBB COMPANY-14842892

PATIENT
  Age: 71 Year
  Sex: Female

DRUGS (11)
  1. METFORMIN HCL [Suspect]
     Indication: TYPE 2 DIABETES MELLITUS
     Route: 048
  2. IRBESARTAN [Suspect]
  3. ATENOLOL [Suspect]
     Route: 048
  4. BENDROFLUMETHIAZIDE [Suspect]
  5. ACETYLSALICYLIC ACID SRT [Suspect]
  6. CLOPIDOGREL BISULFATE [Suspect]
  7. DOXAZOSIN [Suspect]
  8. ALLOPURINOL [Suspect]
     Indication: GOUT
     Route: 048
  9. GLICLAZIDE [Suspect]
     Indication: TYPE 2 DIABETES MELLITUS
     Route: 048
  10. PERINDOPRIL [Suspect]
     Route: 048
  11. ALCOHOL [Suspect]

REACTIONS (3)
  - HYPOGLYCAEMIA [None]
  - LACTIC ACIDOSIS [None]
  - RENAL FAILURE ACUTE [None]
